FAERS Safety Report 10365878 (Version 1)
Quarter: 2014Q1

REPORT INFORMATION
  Report Type: Spontaneous
  Country: US (occurrence: None)
  Receive Date: 20140306
  Receipt Date: 20140306
  Transmission Date: 20141002
  Serious: Yes (Other)
  Sender: FDA-Public Use
  Company Number: 163-21880-13030358

PATIENT
  Age: 66 Year
  Sex: Male
  Weight: 79.74 kg

DRUGS (2)
  1. REVLIMID [Suspect]
     Indication: PLASMA CELL MYELOMA
     Route: 048
     Dates: start: 201206
  2. CHEMOTHERAPY (CHEMOTHERAPEUTICS) (UNKNOWN) [Concomitant]
     Indication: PLASMA CELL MYELOMA

REACTIONS (3)
  - Rectal haemorrhage [None]
  - Epistaxis [None]
  - Pruritus generalised [None]
